FAERS Safety Report 24806142 (Version 1)
Quarter: 2025Q1

REPORT INFORMATION
  Report Type: Spontaneous
  Country: US (occurrence: US)
  Receive Date: 20250103
  Receipt Date: 20250103
  Transmission Date: 20250409
  Serious: No
  Sender: PFIZER
  Company Number: US-PFIZER INC-PV202400169778

PATIENT
  Age: 81 Year
  Sex: Female
  Weight: 101.32 kg

DRUGS (6)
  1. IBRANCE [Suspect]
     Active Substance: PALBOCICLIB
     Indication: Breast cancer female
     Route: 048
     Dates: start: 20220609
  2. IBRANCE [Suspect]
     Active Substance: PALBOCICLIB
     Indication: Breast cancer stage IV
     Route: 048
     Dates: start: 20220630
  3. LETROZOLE [Suspect]
     Active Substance: LETROZOLE
     Indication: Breast cancer female
     Dosage: Q28D CYCLE
     Dates: start: 20220609
  4. LETROZOLE [Suspect]
     Active Substance: LETROZOLE
     Indication: Breast cancer stage IV
     Dosage: Q28D CYCLE
     Dates: start: 20220630, end: 202312
  5. ZOMETA [Concomitant]
     Active Substance: ZOLEDRONIC ACID
  6. LOSARTAN [Concomitant]
     Active Substance: LOSARTAN
     Indication: Metastases to bone
     Dates: start: 20230106

REACTIONS (5)
  - Pyrexia [Unknown]
  - White blood cell count decreased [Not Recovered/Not Resolved]
  - Basophil percentage increased [Recovering/Resolving]
  - Red blood cell count decreased [Recovering/Resolving]
  - Mean cell haemoglobin increased [Recovering/Resolving]

NARRATIVE: CASE EVENT DATE: 20220101
